FAERS Safety Report 16532353 (Version 1)
Quarter: 2019Q3

REPORT INFORMATION
  Report Type: Spontaneous
  Country: SE (occurrence: SE)
  Receive Date: 20190704
  Receipt Date: 20190704
  Transmission Date: 20191004
  Serious: Yes (Hospitalization)
  Sender: FDA-Public Use
  Company Number: SE-PFIZER INC-2019279720

PATIENT
  Sex: Male

DRUGS (2)
  1. VENLAFAXINE HCL [Suspect]
     Active Substance: VENLAFAXINE HYDROCHLORIDE
     Indication: PSYCHIATRIC SYMPTOM
     Dosage: UNK (1+0.5)
     Route: 064
     Dates: end: 201906
  2. MIRTAZAPINE. [Suspect]
     Active Substance: MIRTAZAPINE
     Dosage: 30 MG, 1X/DAY
     Route: 064
     Dates: end: 201906

REACTIONS (2)
  - Respiratory disorder neonatal [Not Recovered/Not Resolved]
  - Maternal exposure during pregnancy [Unknown]

NARRATIVE: CASE EVENT DATE: 201906
